FAERS Safety Report 9283035 (Version 1)
Quarter: 2013Q2

REPORT INFORMATION
  Report Type: Spontaneous
  Country: US (occurrence: US)
  Receive Date: 20130510
  Receipt Date: 20130510
  Transmission Date: 20140414
  Serious: No
  Sender: FDA-Public Use
  Company Number: US-GLAXOSMITHKLINE-A0974606A

PATIENT
  Sex: Female

DRUGS (2)
  1. TYKERB [Suspect]
     Indication: BREAST CANCER
     Dosage: 1CAP FOUR TIMES PER DAY
     Route: 048
  2. HERCEPTIN [Concomitant]

REACTIONS (2)
  - Rash [Unknown]
  - Drug administration error [Unknown]
